FAERS Safety Report 9166857 (Version 2)
Quarter: 2013Q2

REPORT INFORMATION
  Report Type: Spontaneous
  Country: JP (occurrence: JP)
  Receive Date: 20130318
  Receipt Date: 20130524
  Transmission Date: 20140414
  Serious: No
  Sender: FDA-Public Use
  Company Number: JP-AMGEN-JPNSP2013018020

PATIENT
  Age: 57 Year
  Sex: Male
  Weight: 51 kg

DRUGS (15)
  1. VECTIBIX [Suspect]
     Indication: COLON CANCER
     Dosage: 300 MG, Q2WK
     Route: 041
     Dates: start: 20121217, end: 20121217
  2. VECTIBIX [Suspect]
     Dosage: 200 MG, Q2WK
     Route: 041
     Dates: start: 20121231, end: 20121231
  3. VECTIBIX [Suspect]
     Dosage: 300 MG, Q2WK
     Route: 041
     Dates: start: 20130225
  4. VECTIBIX [Suspect]
     Dosage: 300 MG, Q2WK
     Route: 041
     Dates: start: 20130115, end: 20130128
  5. TS-1 [Concomitant]
     Indication: COLON CANCER
     Dosage: UNK UNK, UNK
     Route: 048
     Dates: start: 20130120
  6. IRINOTECAN HYDROCHLORIDE [Concomitant]
     Indication: COLON CANCER
     Dosage: 140 MG, Q2WK
     Route: 041
     Dates: start: 20121022
  7. IRINOTECAN HYDROCHLORIDE [Concomitant]
     Dosage: 140 MG, Q2WK
     Route: 041
     Dates: start: 20121217
  8. GASRICK D [Concomitant]
     Dosage: 1 DF, QD
     Route: 048
     Dates: start: 20120308
  9. MIYA BM [Concomitant]
     Dosage: 1 DF, TID
     Route: 048
     Dates: start: 20120215
  10. DECADRON                           /00016001/ [Concomitant]
     Indication: PROPHYLAXIS
     Dosage: 2 DF, UNK
     Route: 048
     Dates: start: 20120511
  11. CINAL [Concomitant]
     Dosage: 3 DF, UNK
     Route: 048
     Dates: start: 20121022
  12. ALLEGRA [Concomitant]
     Indication: PROPHYLAXIS
     Dosage: 1 DF, BID
     Route: 048
     Dates: start: 20121217
  13. MINOMYCIN [Concomitant]
     Indication: PROPHYLAXIS
     Dosage: 1 DF, BID
     Route: 048
     Dates: start: 20121231
  14. MAGMITT [Concomitant]
     Dosage: 1 DF, TID
     Route: 048
     Dates: start: 20130213
  15. OXYCONTIN [Concomitant]
     Dosage: 5 MG, BID
     Route: 048
     Dates: start: 20130213

REACTIONS (1)
  - Abdominal pain [Recovered/Resolved]
